FAERS Safety Report 8428581-1 (Version None)
Quarter: 2012Q2

REPORT INFORMATION
  Report Type: 
  Country: None (occurrence: None)
  Receive Date: 20120606
  Receipt Date: 20120606
  Transmission Date: 20120825
  Serious: Yes (Other)
  Sender: FDA-Public Use
  Company Number: None

PATIENT
  Sex: Female
  Weight: 56.6996 kg

DRUGS (1)
  1. VERAPAMIL EXTENDED-RELEASE [Suspect]
     Indication: HYPERTENSION
     Dosage: 1 TAB DAILY

REACTIONS (4)
  - THROAT IRRITATION [None]
  - MUSCLE SPASMS [None]
  - NASAL DISCOMFORT [None]
  - ORAL DISCOMFORT [None]
